FAERS Safety Report 14116495 (Version 2)
Quarter: 2017Q4

REPORT INFORMATION
  Report Type: Report from Study
  Country: BE (occurrence: BE)
  Receive Date: 20171023
  Receipt Date: 20171122
  Transmission Date: 20180321
  Serious: Yes (Hospitalization, Other)
  Sender: FDA-Public Use
  Company Number: BE-BAYER-2017-102007

PATIENT
  Sex: Male
  Weight: 118.6 kg

DRUGS (9)
  1. COVERAM [Concomitant]
     Active Substance: AMLODIPINE\PERINDOPRIL
  2. GAMBARAN [Concomitant]
     Active Substance: NABUMETONE
     Indication: BACK PAIN
     Dosage: UNK
  3. NEXAVAR [Suspect]
     Active Substance: SORAFENIB
     Indication: HEPATOCELLULAR CARCINOMA
     Dosage: DAILY DOSE 800 MG
     Dates: start: 20170526, end: 20170929
  4. ASAFLOW [Concomitant]
     Active Substance: ASPIRIN
     Dosage: 80 MG, UNK
  5. METFORMAX [Concomitant]
     Active Substance: METFORMIN HYDROCHLORIDE
  6. DIAMICRON [Concomitant]
     Active Substance: GLICLAZIDE
  7. MAGNESIUM [Concomitant]
     Active Substance: MAGNESIUM
  8. SELECTOL [Concomitant]
     Active Substance: CELIPROLOL
  9. ZALDIAR [Concomitant]
     Active Substance: ACETAMINOPHEN\TRAMADOL HYDROCHLORIDE
     Indication: BACK PAIN
     Dosage: UNK

REACTIONS (58)
  - Haemangioma [Not Recovered/Not Resolved]
  - Skin infection [Recovering/Resolving]
  - Cardiac discomfort [Not Recovered/Not Resolved]
  - Emphysema [None]
  - Therapeutic response unexpected [Not Recovered/Not Resolved]
  - Pruritus [Not Recovered/Not Resolved]
  - Hypertension [Not Recovered/Not Resolved]
  - Palmar-plantar erythrodysaesthesia syndrome [Recovering/Resolving]
  - Stomatitis [Recovering/Resolving]
  - Pain in extremity [Not Recovered/Not Resolved]
  - Mental impairment [Not Recovered/Not Resolved]
  - Anaemia [Not Recovered/Not Resolved]
  - White blood cell count increased [Not Recovered/Not Resolved]
  - Muscle fatigue [Not Recovered/Not Resolved]
  - Laboratory test abnormal [None]
  - Weight decreased [Not Recovered/Not Resolved]
  - Alopecia [Not Recovered/Not Resolved]
  - Weight decreased [Not Recovered/Not Resolved]
  - Oropharyngeal pain [None]
  - Dizziness [Not Recovered/Not Resolved]
  - Pallor [None]
  - Pre-existing condition improved [None]
  - Limb injury [None]
  - Platelet count increased [Not Recovered/Not Resolved]
  - Weight decreased [Not Recovered/Not Resolved]
  - Constipation [Not Recovered/Not Resolved]
  - Mucous membrane disorder [None]
  - Musculoskeletal disorder [Not Recovered/Not Resolved]
  - Faeces discoloured [Not Recovered/Not Resolved]
  - Pruritus [Recovering/Resolving]
  - Pruritus [Recovering/Resolving]
  - Fatigue [Recovering/Resolving]
  - Dry skin [Recovering/Resolving]
  - Hypertension [None]
  - Blood pressure decreased [Not Recovered/Not Resolved]
  - Joint injury [Not Recovered/Not Resolved]
  - Dry eye [Not Recovered/Not Resolved]
  - Dysgeusia [None]
  - Limb discomfort [None]
  - Rhinorrhoea [Not Recovered/Not Resolved]
  - Rash [Not Recovered/Not Resolved]
  - Peripheral swelling [Recovering/Resolving]
  - Induration [Recovering/Resolving]
  - Diarrhoea [Not Recovered/Not Resolved]
  - Dyspnoea [None]
  - Blood pressure decreased [None]
  - Gastrointestinal disorder [Not Recovered/Not Resolved]
  - Dyspnoea [Not Recovered/Not Resolved]
  - Chest discomfort [Not Recovered/Not Resolved]
  - White blood cell disorder [None]
  - Diarrhoea [Recovered/Resolved]
  - Limb injury [Recovering/Resolving]
  - Tongue injury [None]
  - Hypotension [Not Recovered/Not Resolved]
  - Cough [Recovered/Resolved]
  - Faeces hard [Not Recovered/Not Resolved]
  - Rash erythematous [Recovering/Resolving]
  - Splinter haemorrhages [Not Recovered/Not Resolved]

NARRATIVE: CASE EVENT DATE: 2017
